FAERS Safety Report 9454321 (Version 1)
Quarter: 2013Q3

REPORT INFORMATION
  Report Type: Spontaneous
  Country: US (occurrence: None)
  Receive Date: 20130809
  Receipt Date: 20130809
  Transmission Date: 20140515
  Serious: No
  Sender: FDA-Public Use
  Company Number: None

PATIENT
  Sex: Female
  Weight: 99.79 kg

DRUGS (5)
  1. TECFIDERA [Suspect]
     Indication: MULTIPLE SCLEROSIS
     Dosage: 2 PILLS 2X  1AM  1PM  MOUTH
     Route: 048
     Dates: start: 20130714
  2. ABILIFY [Concomitant]
  3. CLONAZAPAM [Concomitant]
  4. WELLBUTRIN [Concomitant]
  5. V. D [Concomitant]

REACTIONS (4)
  - Fatigue [None]
  - Fatigue [None]
  - Eating disorder [None]
  - Decreased appetite [None]
